FAERS Safety Report 10306680 (Version 3)
Quarter: 2020Q2

REPORT INFORMATION
  Report Type: Spontaneous
  Country: US (occurrence: US)
  Receive Date: 20140715
  Receipt Date: 20200427
  Transmission Date: 20200713
  Serious: No
  Sender: FDA-Public Use
  Company Number: US-PFIZER INC-2014196056

PATIENT
  Age: 33 Year
  Sex: Female

DRUGS (2)
  1. RELPAX [Suspect]
     Active Substance: ELETRIPTAN HYDROBROMIDE
     Indication: HEADACHE
     Dosage: 40 MG, AS NEEDED (ONE PRN MAY REPEAT 2ND DOSE 2 HRS. LATER)
  2. RELPAX [Suspect]
     Active Substance: ELETRIPTAN HYDROBROMIDE
     Dosage: 40 MG (1 TAB IN CASE OF SEVERE HEADACHE MAY REPEAT DOSE IN 2 HOURS, NO MORE THAN 2 TABS DAILY)

REACTIONS (3)
  - Nervous system disorder [Unknown]
  - Off label use [Unknown]
  - Product use in unapproved indication [Unknown]
